FAERS Safety Report 17353326 (Version 1)
Quarter: 2020Q1

REPORT INFORMATION
  Report Type: Spontaneous
  Country: CH (occurrence: CH)
  Receive Date: 20200131
  Receipt Date: 20200131
  Transmission Date: 20200409
  Serious: Yes (Death, Other)
  Sender: FDA-Public Use
  Company Number: CH-GYP-000002

PATIENT
  Age: 58 Year

DRUGS (8)
  1. PREDNISONE. [Suspect]
     Active Substance: PREDNISONE
     Indication: SMALL AIRWAYS DISEASE
     Dosage: 60 MG DAILY
     Route: 065
  2. SULFAMETHOXAZOLE [Concomitant]
     Active Substance: SULFAMETHOXAZOLE
     Indication: ANTIFUNGAL PROPHYLAXIS
     Route: 065
  3. PREDNISONE. [Suspect]
     Active Substance: PREDNISONE
     Indication: SMALL AIRWAYS DISEASE
     Dosage: 1.5 MG/KG/DAY
     Route: 065
  4. PREDNISONE. [Suspect]
     Active Substance: PREDNISONE
     Indication: SMALL AIRWAYS DISEASE
     Dosage: 15 MG/DAY
     Route: 065
  5. TRIMETHOPRIM. [Concomitant]
     Active Substance: TRIMETHOPRIM
     Indication: ANTIFUNGAL PROPHYLAXIS
  6. PREDNISONE. [Suspect]
     Active Substance: PREDNISONE
     Indication: SMALL AIRWAYS DISEASE
     Dosage: 20 MG/DAY
     Route: 065
  7. PREDNISONE. [Suspect]
     Active Substance: PREDNISONE
     Indication: SMALL AIRWAYS DISEASE
     Dosage: 2 MG/KG/DAY
     Route: 065
  8. AZITHROMYCIN ANHYDROUS. [Concomitant]
     Active Substance: AZITHROMYCIN ANHYDROUS
     Indication: ANTIFUNGAL PROPHYLAXIS
     Dosage: 250 MG 3 TIMES WEEKLY

REACTIONS (7)
  - Disease progression [Fatal]
  - Pulmonary function test decreased [Unknown]
  - Adrenal gland cancer metastatic [Fatal]
  - Product use in unapproved indication [Unknown]
  - Respiratory tract infection [Unknown]
  - Drug ineffective [Unknown]
  - Drug intolerance [Unknown]
